FAERS Safety Report 23903173 (Version 1)
Quarter: 2024Q2

REPORT INFORMATION
  Report Type: Spontaneous
  Country: US (occurrence: US)
  Receive Date: 20240527
  Receipt Date: 20240527
  Transmission Date: 20240716
  Serious: No
  Sender: FDA-Public Use
  Company Number: US-GLENMARK PHARMACEUTICALS-2024GMK089536

PATIENT

DRUGS (1)
  1. METRONIDAZOLE [Suspect]
     Active Substance: METRONIDAZOLE
     Indication: Vulvovaginal mycotic infection
     Dosage: 1 DOSAGE FORM, QD (ONE APPLICATOR OF MEDICATION AT NIGHT FOR 5 NIGHTS)
     Route: 067
     Dates: start: 20240308, end: 20240313

REACTIONS (1)
  - Drug ineffective for unapproved indication [Unknown]
